FAERS Safety Report 21254721 (Version 1)
Quarter: 2022Q3

REPORT INFORMATION
  Report Type: Spontaneous
  Country: US (occurrence: None)
  Receive Date: 20220824
  Receipt Date: 20220824
  Transmission Date: 20221027
  Serious: No
  Sender: FDA-Public Use
  Company Number: None

PATIENT
  Age: 53 Year
  Sex: Female
  Weight: 67.5 kg

DRUGS (4)
  1. VUITY [Suspect]
     Active Substance: PILOCARPINE HYDROCHLORIDE
     Indication: Hypermetropia
     Route: 047
     Dates: start: 20220723, end: 20220824
  2. VITAMIN D [Concomitant]
     Active Substance: VITAMIN D NOS
  3. daily mult [Concomitant]
  4. ZINC [Concomitant]
     Active Substance: ZINC

REACTIONS (2)
  - Drug ineffective [None]
  - Vertigo [None]

NARRATIVE: CASE EVENT DATE: 20220824
